FAERS Safety Report 4530413-9 (Version None)
Quarter: 2004Q4

REPORT INFORMATION
  Report Type: 
  Country: None (occurrence: None)
  Receive Date: 20041215
  Receipt Date: 20041201
  Transmission Date: 20050328
  Serious: No
  Sender: FDA-Public Use
  Company Number: 2004AP06144

PATIENT
  Age: 27 Year
  Sex: Female

DRUGS (1)
  1. XYLOCAINE [Suspect]
     Indication: INFILTRATION ANAESTHESIA
     Dosage: 0.3 ML DI
     Dates: start: 20041129, end: 20041129

REACTIONS (7)
  - CHEST DISCOMFORT [None]
  - FEELING ABNORMAL [None]
  - FEELING HOT [None]
  - NAUSEA [None]
  - PULSE ABNORMAL [None]
  - PULSE PRESSURE DECREASED [None]
  - TACHYCARDIA [None]
